FAERS Safety Report 13738624 (Version 1)
Quarter: 2017Q3

REPORT INFORMATION
  Report Type: Spontaneous
  Country: US (occurrence: US)
  Receive Date: 20170710
  Receipt Date: 20170710
  Transmission Date: 20171127
  Serious: No
  Sender: FDA-Public Use
  Company Number: US-SAOL THERAPEUTICS-2017SAO00032

PATIENT
  Age: 20 Year
  Sex: Male
  Weight: 93.42 kg

DRUGS (2)
  1. BACLOFEN. [Suspect]
     Active Substance: BACLOFEN
     Indication: MUSCLE SPASTICITY
     Dosage: 850 ?G, \DAY
     Route: 037
  2. BACLOFEN. [Suspect]
     Active Substance: BACLOFEN
     Indication: MUSCLE SPASMS

REACTIONS (3)
  - Muscle spasms [Unknown]
  - Drug dose omission [Unknown]
  - Device alarm issue [Unknown]

NARRATIVE: CASE EVENT DATE: 2016
